FAERS Safety Report 7268167-8 (Version None)
Quarter: 2011Q1

REPORT INFORMATION
  Report Type: 
  Country: None (occurrence: None)
  Receive Date: 20110201
  Receipt Date: 20110126
  Transmission Date: 20110831
  Serious: Yes (Hospitalization)
  Sender: FDA-Public Use
  Company Number: ES-CEPHALON-2011000507

PATIENT
  Sex: Female
  Weight: 55 kg

DRUGS (9)
  1. BENDAMUSTINE HCL [Suspect]
     Indication: B-CELL LYMPHOMA
     Route: 042
     Dates: end: 20101130
  2. TEVETEN [Concomitant]
  3. RASILEZ [Concomitant]
  4. DETRUSITOL [Concomitant]
  5. MYCOPHENOLATE MOFETIL [Concomitant]
  6. FLUVASTATIN [Concomitant]
  7. OMEPRAZOLE [Concomitant]
  8. TORSEMIDE [Concomitant]
  9. RITUXIMAB [Suspect]
     Indication: B-CELL LYMPHOMA
     Route: 042

REACTIONS (1)
  - CYTOMEGALOVIRUS ENTERITIS [None]
